FAERS Safety Report 22691040 (Version 5)
Quarter: 2024Q1

REPORT INFORMATION
  Report Type: Report from Study
  Country: US (occurrence: US)
  Receive Date: 20230711
  Receipt Date: 20240207
  Transmission Date: 20240410
  Serious: Yes (Other)
  Sender: FDA-Public Use
  Company Number: US-MYLANLABS-2023M1072792

PATIENT
  Sex: Female
  Weight: 57.15 kg

DRUGS (3)
  1. GLATIRAMER ACETATE [Suspect]
     Active Substance: GLATIRAMER ACETATE
     Indication: Multiple sclerosis
     Dosage: 40 MILLIGRAM, 3XW
     Route: 058
  2. GLATIRAMER ACETATE [Suspect]
     Active Substance: GLATIRAMER ACETATE
     Dosage: 40 MILLIGRAM, 3XW
     Route: 058
  3. ACETAMINOPHEN\HYDROCODONE [Concomitant]
     Active Substance: ACETAMINOPHEN\HYDROCODONE
     Dosage: 10.25 MILLIGRAM
     Route: 065

REACTIONS (11)
  - Diverticulitis [Recovering/Resolving]
  - Pain [Unknown]
  - Abdominal discomfort [Not Recovered/Not Resolved]
  - Diarrhoea [Recovering/Resolving]
  - Hypoaesthesia [Unknown]
  - Vomiting [Recovering/Resolving]
  - Injection site pain [Unknown]
  - Urticaria [Unknown]
  - Back pain [Unknown]
  - Dyspnoea [Unknown]
  - Flushing [Unknown]
